FAERS Safety Report 6186641-2 (Version None)
Quarter: 2009Q2

REPORT INFORMATION
  Report Type: 
  Country: None (occurrence: None)
  Receive Date: 20090508
  Receipt Date: 20090508
  Transmission Date: 20091009
  Serious: No
  Sender: FDA-Public Use
  Company Number: None

PATIENT
  Sex: Female

DRUGS (3)
  1. LAMOTRIGINE [Suspect]
     Indication: EPILEPSY
     Dosage: 200 MG PO BID
     Route: 048
     Dates: start: 20081101
  2. LORAZEPAM [Concomitant]
  3. CHLORAZEPATE [Concomitant]

REACTIONS (4)
  - CONVULSION [None]
  - DISEASE RECURRENCE [None]
  - DRUG INEFFECTIVE [None]
  - PRODUCT SUBSTITUTION ISSUE [None]
